FAERS Safety Report 7690432-0 (Version None)
Quarter: 2011Q3

REPORT INFORMATION
  Report Type: 
  Country: None (occurrence: None)
  Receive Date: 20110818
  Receipt Date: 20110804
  Transmission Date: 20111222
  Serious: Yes (Hospitalization)
  Sender: FDA-Public Use
  Company Number: DE-UCBSA-022285

PATIENT
  Sex: Male
  Weight: 19.6 kg

DRUGS (4)
  1. KEPPRA [Suspect]
     Indication: EPILEPSY
     Dosage: 100 MG/ML, ROUTE: ORAL/PEG TUBE
     Route: 048
     Dates: start: 20100401
  2. BRONCHORETARD [Concomitant]
     Dosage: SINGLE DOSE: I CAPSULE, DAILY DOSE: 2CAPSULE, ROUTE: ORAL/PEG TUBE
     Route: 048
  3. KEPPRA [Suspect]
     Dosage: DOSE INCREASED
     Route: 048
     Dates: start: 20110802
  4. ESOMEPRAZOLE MAGNESIUM [Concomitant]
     Indication: GASTROOESOPHAGEAL REFLUX DISEASE
     Dosage: 20 MG, ROUTE: ORAL/PEG TUBE
     Route: 048

REACTIONS (5)
  - LISTLESS [None]
  - COUGH [None]
  - PNEUMONIA [None]
  - NASOPHARYNGITIS [None]
  - FEELING ABNORMAL [None]
